FAERS Safety Report 4968408-3 (Version None)
Quarter: 2006Q2

REPORT INFORMATION
  Report Type: 
  Country: None (occurrence: None)
  Receive Date: 20060410
  Receipt Date: 20051017
  Transmission Date: 20061013
  Serious: Yes (Hospitalization)
  Sender: FDA-Public Use
  Company Number: US-MERCK-0510USA07728

PATIENT
  Age: 53 Year
  Sex: Male
  Weight: 127 kg

DRUGS (31)
  1. AMOXICILLIN [Concomitant]
     Route: 065
  2. AMARYL [Concomitant]
     Route: 065
  3. SKELAXIN [Concomitant]
     Route: 065
  4. CARDIZEM [Concomitant]
     Route: 065
  5. ZITHROMAX [Concomitant]
     Route: 065
  6. VIOXX [Suspect]
     Indication: ARTHRITIS
     Route: 048
     Dates: start: 20000313, end: 20021206
  7. VIOXX [Suspect]
     Route: 048
     Dates: start: 20000313, end: 20021206
  8. KLOR-CON [Concomitant]
     Indication: BLOOD POTASSIUM
     Route: 065
  9. MOTRIN [Concomitant]
     Route: 048
     Dates: start: 19950101
  10. NAPROXEN [Concomitant]
     Route: 048
     Dates: start: 19950101
  11. ALEVE [Concomitant]
     Route: 048
     Dates: start: 19950101
  12. TYLENOL (CAPLET) [Concomitant]
     Route: 048
     Dates: start: 19950101
  13. NEURONTIN [Concomitant]
     Route: 065
  14. SPIRONOLACTONE [Concomitant]
     Indication: FLUID RETENTION
     Route: 048
  15. SPIRONOLACTONE [Concomitant]
     Indication: HYPERTENSION
     Route: 048
  16. PROPOXYPHENE HYDROCHLORIDE [Concomitant]
     Route: 065
  17. ACCUPRIL [Concomitant]
     Indication: HYPERTENSION
     Route: 048
     Dates: start: 19990101
  18. CARTIA (DILTIAZEM HYDROCHLORIDE) [Concomitant]
     Indication: HYPERTENSION
     Route: 065
  19. METFORMIN [Concomitant]
     Indication: DIABETES MELLITUS
     Route: 048
  20. ASPIRIN [Concomitant]
     Indication: CARDIAC DISORDER
     Route: 048
     Dates: start: 19950101
  21. ASPIRIN [Concomitant]
     Indication: PROPHYLAXIS
     Route: 048
     Dates: start: 19950101
  22. PLAVIX [Concomitant]
     Indication: ARTERIAL OCCLUSIVE DISEASE
     Route: 065
  23. METOCLOPRAMIDE [Concomitant]
     Route: 048
  24. BIDEX [Concomitant]
     Route: 065
  25. METHYLPREDNISOLONE [Concomitant]
     Route: 065
  26. MOBIC [Concomitant]
     Route: 065
  27. GLIPIZIDE [Concomitant]
     Indication: HYPERTENSION
     Route: 065
  28. ACTOS [Concomitant]
     Indication: DIABETES MELLITUS
     Route: 065
  29. CIMETIDINE [Concomitant]
     Route: 065
  30. VIAGRA [Concomitant]
     Route: 065
  31. GLUCOPHAGE [Concomitant]
     Indication: DIABETES MELLITUS
     Route: 065

REACTIONS (5)
  - CARDIAC DISORDER [None]
  - CARDIAC FAILURE CONGESTIVE [None]
  - CEREBROVASCULAR ACCIDENT [None]
  - DEPRESSION [None]
  - FLUID RETENTION [None]
